FAERS Safety Report 7880755-4 (Version None)
Quarter: 2011Q4

REPORT INFORMATION
  Report Type: 
  Country: None (occurrence: None)
  Receive Date: 20111101
  Receipt Date: 20111024
  Transmission Date: 20120403
  Serious: No
  Sender: FDA-Public Use
  Company Number: US-B.I. PHARMACEUTICALS,INC./RIDGEFIELD-2011-BP-24894BP

PATIENT
  Age: 93 Year
  Sex: Female

DRUGS (2)
  1. MEDICATION NOT FURTHER SPECIFIED [Concomitant]
  2. AGGRENOX [Suspect]
     Indication: CEREBROVASCULAR ACCIDENT PROPHYLAXIS

REACTIONS (5)
  - HEART RATE INCREASED [None]
  - ABDOMINAL DISCOMFORT [None]
  - HYPERTENSION [None]
  - ANXIETY [None]
  - FLUSHING [None]
